FAERS Safety Report 18499663 (Version 1)
Quarter: 2020Q4

REPORT INFORMATION
  Report Type: Report from Study
  Country: None (occurrence: CA)
  Receive Date: 20201112
  Receipt Date: 20201112
  Transmission Date: 20210114
  Serious: Yes (Other)
  Sender: FDA-Public Use
  Company Number: CA-ABBVIE-20K-028-3646902-00

PATIENT
  Age: 74 Year
  Sex: Female

DRUGS (2)
  1. HUMIRA [Suspect]
     Active Substance: ADALIMUMAB
     Indication: CROHN^S DISEASE
     Route: 058
     Dates: start: 20160201
  2. VITAMIN C [Suspect]
     Active Substance: ASCORBIC ACID
     Indication: INTESTINAL OBSTRUCTION
     Route: 065
     Dates: start: 202011

REACTIONS (10)
  - Flatulence [Recovered/Resolved]
  - Balance disorder [Unknown]
  - Injection site pain [Not Recovered/Not Resolved]
  - Anal fissure [Recovered/Resolved]
  - Impaired work ability [Unknown]
  - Impaired quality of life [Unknown]
  - Intestinal obstruction [Recovered/Resolved]
  - Abdominal distension [Recovered/Resolved]
  - Abdominal distension [Recovered/Resolved]
  - Diarrhoea [Not Recovered/Not Resolved]

NARRATIVE: CASE EVENT DATE: 202011
